FAERS Safety Report 9147871 (Version 1)
Quarter: 2013Q1

REPORT INFORMATION
  Report Type: Spontaneous
  Country: US (occurrence: US)
  Receive Date: 20130307
  Receipt Date: 20130307
  Transmission Date: 20140127
  Serious: Yes (Life-Threatening, Hospitalization, Other)
  Sender: FDA-Public Use
  Company Number: CHPA2013US004166

PATIENT
  Age: 70 Year
  Sex: Female

DRUGS (5)
  1. MYOFLEX ANALGESIC CREME [Suspect]
     Indication: ARTHRITIS
     Dosage: UNK, PRN
     Route: 061
  2. MYOFLEX ANALGESIC CREME [Suspect]
     Indication: MYALGIA
  3. PLAVIX [Concomitant]
  4. LOPRESSOR [Concomitant]
  5. LANSOPRAZOLE [Concomitant]

REACTIONS (3)
  - Myocardial infarction [Recovered/Resolved]
  - Muscle injury [Not Recovered/Not Resolved]
  - Myalgia [Not Recovered/Not Resolved]
